FAERS Safety Report 5068471-8 (Version None)
Quarter: 2006Q3

REPORT INFORMATION
  Report Type: 
  Country: None (occurrence: None)
  Receive Date: 20060802
  Receipt Date: 20051013
  Transmission Date: 20061208
  Serious: No
  Sender: FDA-Public Use
  Company Number: US-BRISTOL-MYERS SQUIBB COMPANY-13144217

PATIENT
  Age: 78 Year
  Sex: Female
  Weight: 62 kg

DRUGS (4)
  1. COUMADIN [Suspect]
     Indication: CEREBROVASCULAR ACCIDENT PROPHYLAXIS
     Dosage: CURRENT DOSE: 1 MG DAILY ALTERNATING WITH 2 MG EVERY OTHER DAY
     Dates: start: 20050502
  2. ACETAMINOPHEN [Concomitant]
  3. MICARDIS [Concomitant]
  4. TOPROL-XL [Concomitant]

REACTIONS (2)
  - RASH PRURITIC [None]
  - SWELLING [None]
